FAERS Safety Report 25485323 (Version 1)
Quarter: 2025Q2

REPORT INFORMATION
  Report Type: Spontaneous
  Country: JP (occurrence: JP)
  Receive Date: 20250626
  Receipt Date: 20250626
  Transmission Date: 20250717
  Serious: Yes (Other)
  Sender: BAYER HEALTHCARE PHARMACEUTICALS INC.
  Company Number: JP-BAYER-2024A130460

PATIENT
  Age: 68 Year
  Sex: Male
  Weight: 67 kg

DRUGS (8)
  1. NUBEQA [Suspect]
     Active Substance: DAROLUTAMIDE
     Indication: Prostate cancer metastatic
     Dosage: DAILY DOSE 1200 MG
     Dates: start: 20231106, end: 20240614
  2. DOCETAXEL [Suspect]
     Active Substance: DOCETAXEL
     Indication: Prostate cancer metastatic
     Dosage: 70 MG/M2, Q3WK
     Route: 042
     Dates: start: 20231114
  3. DOCETAXEL [Suspect]
     Active Substance: DOCETAXEL
     Indication: Prostate cancer metastatic
     Dosage: 70 MG/M2, Q3WK
     Route: 042
  4. DOCETAXEL [Suspect]
     Active Substance: DOCETAXEL
     Indication: Prostate cancer metastatic
     Dosage: 70 MG/M2, Q3WK
     Route: 042
  5. DOCETAXEL [Suspect]
     Active Substance: DOCETAXEL
     Indication: Prostate cancer metastatic
     Dosage: 70 MG/M2, Q3WK
     Route: 042
  6. DOCETAXEL [Suspect]
     Active Substance: DOCETAXEL
     Indication: Prostate cancer metastatic
     Dosage: 70 MG/M2, Q3WK
     Route: 042
     Dates: end: 20240312
  7. LEUPROLIDE ACETATE [Suspect]
     Active Substance: LEUPROLIDE ACETATE
  8. DEGARELIX [Concomitant]
     Active Substance: DEGARELIX
     Indication: Prostate cancer
     Dates: start: 20231106

REACTIONS (4)
  - Prostate cancer recurrent [None]
  - Neuroendocrine tumour [None]
  - Anaemia [Recovering/Resolving]
  - Aspartate aminotransferase increased [None]

NARRATIVE: CASE EVENT DATE: 20231113
